FAERS Safety Report 7816436-2 (Version None)
Quarter: 2011Q4

REPORT INFORMATION
  Report Type: 
  Country: None (occurrence: None)
  Receive Date: 20111017
  Receipt Date: 20111006
  Transmission Date: 20120403
  Serious: Yes (Other)
  Sender: FDA-Public Use
  Company Number: US-JNJFOC-20060906332

PATIENT
  Sex: Male
  Weight: 77.57 kg

DRUGS (5)
  1. KLONOPIN [Concomitant]
  2. TOPROL-XL [Concomitant]
  3. SEROQUEL [Suspect]
     Indication: TOURETTE'S DISORDER
  4. RISPERDAL [Suspect]
     Indication: TOURETTE'S DISORDER
     Route: 048
     Dates: start: 19971201
  5. NITRO-DUR [Concomitant]

REACTIONS (3)
  - TARDIVE DYSKINESIA [None]
  - INJURY [None]
  - DIABETES MELLITUS [None]
